FAERS Safety Report 18150702 (Version 3)
Quarter: 2020Q3

REPORT INFORMATION
  Report Type: Spontaneous
  Country: FR (occurrence: FR)
  Receive Date: 20200814
  Receipt Date: 20200903
  Transmission Date: 20201103
  Serious: Yes (Other)
  Sender: FDA-Public Use
  Company Number: ALC2020FR006391

PATIENT

DRUGS (5)
  1. CPAK REF C17818?05 [Concomitant]
     Dosage: UNK
     Route: 065
     Dates: start: 20200728, end: 20200728
  2. BSS [Suspect]
     Active Substance: CALCIUM CHLORIDE\MAGNESIUM CHLORIDE\POTASSIUM CHLORIDE\SODIUM ACETATE\SODIUM CHLORIDE\SODIUM CITRATE
     Indication: CATARACT OPERATION
     Dosage: 500 ML
     Route: 065
  3. CPAK REF C17818?05 [Concomitant]
     Indication: LENS EXTRACTION
     Dosage: UNK
     Route: 065
     Dates: start: 20200728, end: 20200728
  4. DUOVISC [Concomitant]
     Active Substance: CHONDROITIN SULFATE SODIUM NOS\HYALURONATE SODIUM
     Indication: PRODUCT USED FOR UNKNOWN INDICATION
     Dosage: UNK
     Route: 065
  5. BSS [Suspect]
     Active Substance: CALCIUM CHLORIDE\MAGNESIUM CHLORIDE\POTASSIUM CHLORIDE\SODIUM ACETATE\SODIUM CHLORIDE\SODIUM CITRATE
     Dosage: 500 ML
     Route: 065

REACTIONS (7)
  - Corneal oedema [Unknown]
  - Corneal scar [Unknown]
  - Endophthalmitis [Unknown]
  - Ulcerative keratitis [Unknown]
  - Hypopyon [Unknown]
  - Vitritis [Unknown]
  - Intraocular pressure increased [Unknown]

NARRATIVE: CASE EVENT DATE: 20200728
